FAERS Safety Report 5102502-1 (Version None)
Quarter: 2006Q3

REPORT INFORMATION
  Report Type: 
  Country: None (occurrence: None)
  Receive Date: 20060907
  Receipt Date: 20060825
  Transmission Date: 20061208
  Serious: Yes (Hospitalization, Other)
  Sender: FDA-Public Use
  Company Number: 2006041685

PATIENT
  Age: 63 Year
  Sex: Female
  Weight: 113.8529 kg

DRUGS (7)
  1. BEXTRA [Suspect]
     Indication: INFLAMMATION
     Dosage: 40 MG (20 MG, 2 IN 1 D), ORAL
     Route: 048
     Dates: start: 20030101
  2. BEXTRA [Suspect]
     Indication: PAIN
     Dosage: 40 MG (20 MG, 2 IN 1 D), ORAL
     Route: 048
     Dates: start: 20030101
  3. POTASSIUM CHLORIDE [Concomitant]
  4. NEXIUM [Concomitant]
  5. CARDIZEM CD [Concomitant]
  6. THEOPHYLLINE [Concomitant]
  7. LASIX [Concomitant]

REACTIONS (8)
  - ATRIAL FIBRILLATION [None]
  - CARDIAC FAILURE CONGESTIVE [None]
  - CEREBROVASCULAR ACCIDENT [None]
  - DYSPNOEA [None]
  - FACIAL PALSY [None]
  - MENTAL STATUS CHANGES [None]
  - SALIVARY HYPERSECRETION [None]
  - TRANSIENT ISCHAEMIC ATTACK [None]
